FAERS Safety Report 5034772-2 (Version None)
Quarter: 2006Q2

REPORT INFORMATION
  Report Type: 
  Country: None (occurrence: None)
  Receive Date: 20060509
  Receipt Date: 20060216
  Transmission Date: 20061013
  Serious: Yes (Hospitalization)
  Sender: FDA-Public Use
  Company Number: US200602003498

PATIENT
  Sex: Female

DRUGS (1)
  1. PROZAC [Suspect]
     Dosage: ORAL
     Route: 048
     Dates: start: 20000101, end: 20010101

REACTIONS (2)
  - ALOPECIA [None]
  - FALL [None]
